FAERS Safety Report 19370746 (Version 1)
Quarter: 2021Q2

REPORT INFORMATION
  Report Type: Spontaneous
  Country: MX (occurrence: MX)
  Receive Date: 20210603
  Receipt Date: 20210603
  Transmission Date: 20210717
  Serious: Yes (Hospitalization, Other)
  Sender: FDA-Public Use
  Company Number: MX-SA-2021SA141893

PATIENT
  Age: 40 Year
  Sex: Female
  Weight: 95 kg

DRUGS (13)
  1. COLECALCIFEROL [Concomitant]
     Active Substance: CHOLECALCIFEROL
     Dosage: 0.5 DF, Q12H
     Route: 048
  2. DUPHASTON [Concomitant]
     Active Substance: DYDROGESTERONE
     Dosage: 10MG
     Route: 065
  3. CABERGOLINE. [Concomitant]
     Active Substance: CABERGOLINE
     Dosage: 0.5 DF, Q3D
     Route: 065
  4. ACETYLSALICYLIC ACID [Concomitant]
     Active Substance: ASPIRIN
     Dosage: 100 MG, QD
     Route: 048
  5. METICORTEN [Concomitant]
     Active Substance: PREDNISONE
     Dosage: 5 MG, QD
     Route: 048
  6. METFORMIN [Concomitant]
     Active Substance: METFORMIN HYDROCHLORIDE
     Dosage: 1 DF, QD
     Route: 048
  7. CLEXANE (AMPOULE) [Suspect]
     Active Substance: ENOXAPARIN SODIUM
     Indication: ANTIPHOSPHOLIPID SYNDROME
     Dosage: 20 MG, QD
     Route: 058
     Dates: start: 202104, end: 20210517
  8. RESVERATROL [Concomitant]
     Active Substance: DIETARY SUPPLEMENT\RESVERATROL
     Dosage: 500 MG, Q12H
     Route: 065
  9. GESLUTIN [Concomitant]
     Dosage: 1 DF, Q12H
     Route: 067
  10. PROGESTERONE. [Concomitant]
     Active Substance: PROGESTERONE
     Dosage: 50 MG, QD
     Route: 030
  11. FOLIVITAL [Concomitant]
     Dosage: 1 DF, QD
     Route: 048
  12. ESTRADIOL VALERATE. [Concomitant]
     Active Substance: ESTRADIOL VALERATE
     Dosage: 2 MG, Q8H
     Route: 048
  13. ASPRIN [Concomitant]
     Active Substance: ASPIRIN
     Indication: ANTIPHOSPHOLIPID SYNDROME
     Route: 048

REACTIONS (5)
  - Off label use [Unknown]
  - Habitual abortion [Recovered/Resolved]
  - Maternal exposure during pregnancy [Unknown]
  - Inappropriate schedule of product administration [Unknown]
  - Decreased embryo viability [Recovered/Resolved]

NARRATIVE: CASE EVENT DATE: 20210517
